FAERS Safety Report 7461725-7 (Version None)
Quarter: 2011Q2

REPORT INFORMATION
  Report Type: 
  Country: None (occurrence: None)
  Receive Date: 20110506
  Receipt Date: 20080828
  Transmission Date: 20111010
  Serious: Yes (Death, Other)
  Sender: FDA-Public Use
  Company Number: US-BAYER-2011-009250

PATIENT
  Age: 83 Year
  Sex: Female
  Weight: 39.002 kg

DRUGS (25)
  1. CALCIUM CHLORIDE [Concomitant]
     Dosage: 1 G, UNK
     Route: 042
     Dates: start: 20061110
  2. NATRECOR [Concomitant]
     Dosage: 0.01 MCG/KILOGRAM/MINUTE
     Route: 042
  3. SODIUM BICARBONATE [Concomitant]
     Dosage: 30 MEQ, UNK
     Route: 042
     Dates: start: 20061110
  4. MAGNESIUM [Concomitant]
     Dosage: 2 G, UNK
     Route: 042
  5. POTASSIUM CHLORIDE [Concomitant]
     Dosage: 20- 33 MILLIEQUIVALENTS/ HOUR
     Route: 042
     Dates: start: 20061110
  6. ZESTRIL [Concomitant]
     Dosage: 20- 60MG
     Route: 048
  7. FELODIPINE [Concomitant]
     Dosage: 2.5 MG, QD
     Route: 048
  8. PLATELETS [Concomitant]
     Dosage: 1 U, UNK
     Route: 042
     Dates: start: 20061110
  9. PLASMA [Concomitant]
     Dosage: 1 U, UNK
     Route: 042
     Dates: start: 20061110
  10. TRASYLOL [Suspect]
     Dosage: 25ML/HR MAINTENANCE DOSE
     Route: 042
     Dates: start: 20061110
  11. AMIDATE [Concomitant]
     Dosage: 18 MG, UNK
     Route: 042
     Dates: start: 20061110
  12. LOVENOX [Concomitant]
     Dosage: 40- 100MG DAILY
     Route: 058
  13. LEVAQUIN [Concomitant]
     Dosage: 250 MG, QD
     Route: 048
  14. HEPARIN [Concomitant]
     Dosage: 30000 U, UNK
     Route: 042
     Dates: start: 20061110
  15. NIPRIDE [Concomitant]
     Dosage: 0.2-0.75MCG/KILOGRAM/MINUTE
     Route: 042
     Dates: start: 20061110
  16. CLONIDINE [Concomitant]
     Dosage: 0.1- 0.3MG TWICE A DAY, EVERY 6 HRS AS NEEDED.
     Route: 048
  17. LIPITOR [Concomitant]
     Dosage: 10 MG, QD
     Route: 048
  18. HYDROCHLOROTHIAZIDE [Concomitant]
     Dosage: 25 MG, QD
     Route: 048
  19. LOPRESSOR [Concomitant]
     Dosage: 50 MG, BID
  20. RED BLOOD CELLS [Concomitant]
     Dosage: 2 U, UNK
     Route: 042
     Dates: start: 20061110
  21. TRASYLOL [Suspect]
     Indication: CORONARY ARTERY BYPASS
     Dosage: 1 ML, UNK, INITIAL TEST DOSE
     Route: 042
     Dates: start: 20061110
  22. LASIX [Concomitant]
     Dosage: 40MG ONE- TWO TIMES
     Route: 048
  23. TRASYLOL [Suspect]
     Indication: AORTIC VALVE REPLACEMENT
     Dosage: 100 ML LOADING DOSE
     Route: 042
     Dates: start: 20061110
  24. VANCOMYCIN [Concomitant]
     Dosage: 1 G, UNK
     Route: 042
     Dates: start: 20061110
  25. VERAPAMIL [Concomitant]
     Dosage: 240 MG, BID
     Route: 048

REACTIONS (11)
  - FEAR [None]
  - DEATH [None]
  - RENAL FAILURE [None]
  - STRESS [None]
  - PAIN [None]
  - RENAL INJURY [None]
  - ANXIETY [None]
  - UNEVALUABLE EVENT [None]
  - MULTI-ORGAN FAILURE [None]
  - EMOTIONAL DISTRESS [None]
  - RENAL IMPAIRMENT [None]
